FAERS Safety Report 17723200 (Version 1)
Quarter: 2020Q2

REPORT INFORMATION
  Report Type: Spontaneous
  Country: US (occurrence: US)
  Receive Date: 20200428
  Receipt Date: 20200428
  Transmission Date: 20200714
  Serious: Yes (Death, Hospitalization)
  Sender: FDA-Public Use
  Company Number: None

PATIENT
  Age: 79 Year
  Sex: Male
  Weight: 83.91 kg

DRUGS (1)
  1. ENALAPRILAT (ENALAPRILAT 1.25MG/ML INJ) [Suspect]
     Active Substance: ENALAPRILAT
     Indication: HYPERTENSION
     Dosage: ?          OTHER DOSE:0.625 - 1.25 MG;?
     Route: 042
     Dates: start: 20191014, end: 20191016

REACTIONS (13)
  - Cardiac arrest [None]
  - Cardiopulmonary failure [None]
  - Stridor [None]
  - Troponin I increased [None]
  - Abscess [None]
  - Laryngeal oedema [None]
  - Vocal cord dysfunction [None]
  - Angioedema [None]
  - Disease complication [None]
  - Leukocytosis [None]
  - Perforated ulcer [None]
  - Sepsis [None]
  - Localised oedema [None]

NARRATIVE: CASE EVENT DATE: 20191016
